FAERS Safety Report 15560441 (Version 2)
Quarter: 2019Q1

REPORT INFORMATION
  Report Type: Spontaneous
  Country: US (occurrence: US)
  Receive Date: 20181029
  Receipt Date: 20190119
  Transmission Date: 20190417
  Serious: No
  Sender: FDA-Public Use
  Company Number: US-TEVA-2018-US-967610

PATIENT
  Sex: Female

DRUGS (1)
  1. LIDOCAINE ACTAVIS [Suspect]
     Active Substance: LIDOCAINE
     Indication: HERPES ZOSTER
     Route: 062

REACTIONS (6)
  - Application site vesicles [Recovered/Resolved]
  - Pain [Recovered/Resolved]
  - Application site irritation [Unknown]
  - Product quality issue [Unknown]
  - Application site rash [Recovered/Resolved]
  - Application site pruritus [Recovered/Resolved]

NARRATIVE: CASE EVENT DATE: 20180130
